FAERS Safety Report 5584056-9 (Version None)
Quarter: 2008Q1

REPORT INFORMATION
  Report Type: 
  Country: None (occurrence: None)
  Receive Date: 20080108
  Receipt Date: 20080101
  Transmission Date: 20080703
  Serious: Yes (Hospitalization, Disabling, Other)
  Sender: FDA-Public Use
  Company Number: US-ROCHE-529124

PATIENT
  Age: 54 Year
  Sex: Female
  Weight: 59 kg

DRUGS (10)
  1. CELLCEPT [Suspect]
     Indication: MYASTHENIA GRAVIS
     Route: 048
     Dates: start: 20071004
  2. CELLCEPT [Suspect]
     Dosage: 500 MG TWICE DAILY
     Route: 048
  3. CELLCEPT [Suspect]
     Dosage: 750 MG TWICE DAILY
     Route: 048
  4. CELLCEPT [Suspect]
     Dosage: 500 MG TWICE DAILY
     Route: 048
     Dates: end: 20071201
  5. PREDNISONE [Suspect]
     Indication: DRUG USE FOR UNKNOWN INDICATION
     Dosage: TOOK 40-60 MG DAILY
     Route: 048
     Dates: start: 20071006
  6. PREDNISONE [Suspect]
     Dosage: WAS ON 40-60 MG DAILY, NOW ON STEROID TAPER REGIMEN
     Route: 048
  7. MULTI-VITAMIN [Concomitant]
     Dosage: STRENGTH: 1
  8. PROTONIX [Concomitant]
     Dosage: TOOK '40' ONCE OR TWICE DAILY
     Route: 048
  9. SYNTHROID [Concomitant]
     Indication: DRUG USE FOR UNKNOWN INDICATION
     Dosage: TAKES '0.75' DAILY FOR YEARS
     Route: 048
  10. VALTREX [Concomitant]
     Indication: DRUG USE FOR UNKNOWN INDICATION
     Dosage: 1000 MG ONCE OR TWICE DAILY FOR A LONG TIME
     Route: 048

REACTIONS (15)
  - ABDOMINAL PAIN [None]
  - AGEUSIA [None]
  - ANAEMIA [None]
  - DEHYDRATION [None]
  - DIARRHOEA [None]
  - DYSGEUSIA [None]
  - ERUCTATION [None]
  - HERPES SIMPLEX [None]
  - IRON DEFICIENCY [None]
  - NAUSEA [None]
  - OCULAR MYASTHENIA [None]
  - SERUM FERRITIN INCREASED [None]
  - VARICELLA ZOSTER VIRUS SEROLOGY POSITIVE [None]
  - VOMITING [None]
  - WEIGHT DECREASED [None]
